FAERS Safety Report 19183479 (Version 3)
Quarter: 2021Q4

REPORT INFORMATION
  Report Type: Spontaneous
  Country: GB (occurrence: GB)
  Receive Date: 20210427
  Receipt Date: 20211022
  Transmission Date: 20220303
  Serious: Yes (Hospitalization, Disabling, Other)
  Sender: FDA-Public Use
  Company Number: GB-AUROBINDO-AUR-APL-2010-01331

PATIENT
  Age: 70 Year
  Sex: Male

DRUGS (15)
  1. CIPROFLOXACIN [Interacting]
     Active Substance: CIPROFLOXACIN
     Indication: Chalazion
     Dosage: 750 MILLIGRAM, TWO TIMES A DAY
     Route: 048
  2. CLOPIDOGREL [Interacting]
     Active Substance: CLOPIDOGREL BISULFATE
     Indication: Chest pain
     Dosage: UNK UNK, ONCE A DAY
     Route: 065
  3. CLOPIDOGREL [Interacting]
     Active Substance: CLOPIDOGREL BISULFATE
     Dosage: 300 MILLIGRAM
     Route: 065
  4. CLOPIDOGREL [Interacting]
     Active Substance: CLOPIDOGREL BISULFATE
     Dosage: 75 MILLIGRAM, ONCE A DAY
     Route: 065
  5. ERYTHROMYCIN [Interacting]
     Active Substance: ERYTHROMYCIN
     Indication: Cellulitis
     Dosage: 250 MILLIGRAM, FOUR TIMES/DAY
     Route: 048
  6. METRONIDAZOLE [Interacting]
     Active Substance: METRONIDAZOLE
     Indication: Chalazion
     Dosage: 400 MILLIGRAM, 3 TIMES A DAY
     Route: 048
  7. MEROPENEM [Interacting]
     Active Substance: MEROPENEM
     Indication: Cellulitis
     Dosage: 2 GRAM, TWO TIMES A DAY
     Route: 042
  8. ASPIRIN [Interacting]
     Active Substance: ASPIRIN
     Indication: Chest pain
     Dosage: UNK UNK, ONCE A DAY
     Route: 065
  9. ASPIRIN [Interacting]
     Active Substance: ASPIRIN
     Indication: Antiplatelet therapy
     Dosage: 300 MILLIGRAM
     Route: 065
  10. ASPIRIN [Interacting]
     Active Substance: ASPIRIN
     Dosage: 75 MILLIGRAM, ONCE A DAY
     Route: 065
  11. TEICOPLANIN [Interacting]
     Active Substance: TEICOPLANIN
     Indication: Antibiotic therapy
     Dosage: 400 MILLIGRAM, ONCE A DAY
     Route: 030
  12. TEICOPLANIN [Interacting]
     Active Substance: TEICOPLANIN
     Indication: Cellulitis
  13. WARFARIN [Interacting]
     Active Substance: WARFARIN
     Indication: Pulmonary embolism
     Dosage: UNK
     Route: 065
  14. WARFARIN [Interacting]
     Active Substance: WARFARIN
     Indication: Factor V deficiency
  15. VITAMIN K [Concomitant]
     Active Substance: PHYTONADIONE
     Indication: Hyphaema
     Dosage: UNK
     Route: 065

REACTIONS (14)
  - Hyphaema [Recovered/Resolved with Sequelae]
  - International normalised ratio increased [Recovered/Resolved]
  - Drug interaction [Recovered/Resolved with Sequelae]
  - Intraocular pressure increased [Not Recovered/Not Resolved]
  - Decreased appetite [Unknown]
  - Eye pain [Recovered/Resolved with Sequelae]
  - Pyrexia [Unknown]
  - Headache [Unknown]
  - Nausea [Unknown]
  - Coagulation time prolonged [Recovered/Resolved]
  - Potentiating drug interaction [Recovered/Resolved with Sequelae]
  - Visual impairment [Unknown]
  - Visual acuity reduced [Unknown]
  - Off label use [Unknown]
